FAERS Safety Report 8844392 (Version 1)
Quarter: 2012Q4

REPORT INFORMATION
  Report Type: 
  Country: US (occurrence: US)
  Receive Date: 20121017
  Receipt Date: 20121017
  Transmission Date: 20130627
  Serious: No
  Sender: FDA-Public Use
  Company Number: US-PFIZER INC-2012254699

PATIENT
  Age: 65 Year
  Sex: Male

DRUGS (2)
  1. XALKORI [Suspect]
     Indication: NEOPLASM MALIGNANT
     Dosage: 250 mg, 2x/day
     Route: 048
     Dates: start: 201208, end: 201209
  2. ZELBORAF [Concomitant]
     Dosage: 960 mg, 2x/day

REACTIONS (8)
  - Rash pustular [Unknown]
  - Rash [Unknown]
  - Swelling [Unknown]
  - Flushing [Unknown]
  - Arthralgia [Recovering/Resolving]
  - Pain [Unknown]
  - Dry skin [Unknown]
  - Skin lesion [Unknown]
